FAERS Safety Report 6674576-8 (Version None)
Quarter: 2010Q2

REPORT INFORMATION
  Report Type: 
  Country: None (occurrence: None)
  Receive Date: 20100409
  Receipt Date: 20100330
  Transmission Date: 20101027
  Serious: Yes (Other)
  Sender: FDA-Public Use
  Company Number: JP-PFIZER INC-2010034659

PATIENT
  Age: 63 Year
  Sex: Male
  Weight: 75 kg

DRUGS (6)
  1. NORVASC [Suspect]
     Indication: HYPERTENSION
     Dosage: 5 MG, 1X/DAY
     Route: 048
     Dates: start: 20100216, end: 20100316
  2. PLAVIX [Concomitant]
     Indication: CEREBRAL ARTERY EMBOLISM
     Dosage: 75 MG/DAY
     Route: 048
     Dates: start: 20091031, end: 20100316
  3. PLAVIX [Concomitant]
     Indication: THROMBOSIS PROPHYLAXIS
  4. CANDESARTAN CILEXETIL [Concomitant]
     Indication: CEREBRAL ARTERY EMBOLISM
     Dosage: 12 MG/DAY
     Route: 048
     Dates: start: 20091124, end: 20100316
  5. MELBIN [Concomitant]
     Route: 048
  6. EUGLUCON [Concomitant]
     Route: 048

REACTIONS (1)
  - BLOOD CREATINE PHOSPHOKINASE INCREASED [None]
